FAERS Safety Report 4403419-8 (Version None)
Quarter: 2004Q3

REPORT INFORMATION
  Report Type: 
  Country: None (occurrence: None)
  Receive Date: 20040716
  Receipt Date: 20040630
  Transmission Date: 20050211
  Serious: Yes (Hospitalization)
  Sender: FDA-Public Use
  Company Number: ATO-04-0645

PATIENT

DRUGS (7)
  1. TRISENOX [Suspect]
     Indication: MULTIPLE MYELOMA
     Dosage: 16 MG (0.35 MG/KG, TWICE
     Dates: start: 20021014, end: 20030516
  2. ZOMETA [Suspect]
     Indication: MULTIPLE MYELOMA
     Dosage: 20 MG (20 MG, TWICE
     Dates: start: 20021231, end: 20030516
  3. PREMPRO [Concomitant]
  4. ALLOPURINOL [Concomitant]
  5. FOSEMAX [Concomitant]
  6. NEURONTIN [Concomitant]
  7. ULTRAM [Concomitant]

REACTIONS (6)
  - ATELECTASIS [None]
  - HAEMOGLOBIN DECREASED [None]
  - PLATELET COUNT DECREASED [None]
  - PNEUMONIA [None]
  - RENAL FAILURE ACUTE [None]
  - WHITE BLOOD CELL COUNT DECREASED [None]
